FAERS Safety Report 5382233-3 (Version None)
Quarter: 2007Q3

REPORT INFORMATION
  Report Type: 
  Country: None (occurrence: None)
  Receive Date: 20070709
  Receipt Date: 20070627
  Transmission Date: 20080115
  Serious: Yes (Other)
  Sender: FDA-Public Use
  Company Number: US-PFIZER INC-2007053882

PATIENT
  Sex: Female
  Weight: 67.272 kg

DRUGS (6)
  1. CHANTIX [Suspect]
     Indication: SMOKING CESSATION THERAPY
     Dates: start: 20070301, end: 20070601
  2. MS CONTIN [Concomitant]
  3. NEURONTIN [Concomitant]
  4. PAXIL [Concomitant]
  5. PRILOSEC [Concomitant]
  6. CRESTOR [Concomitant]

REACTIONS (6)
  - ABDOMINAL PAIN [None]
  - ABNORMAL DREAMS [None]
  - CHOLELITHIASIS [None]
  - DRUG INEFFECTIVE [None]
  - GALLBLADDER DISORDER [None]
  - NIGHTMARE [None]
